FAERS Safety Report 4294895-2 (Version None)
Quarter: 2004Q1

REPORT INFORMATION
  Report Type: 
  Country: None (occurrence: None)
  Receive Date: 20040216
  Receipt Date: 20030213
  Transmission Date: 20041129
  Serious: No
  Sender: FDA-Public Use
  Company Number: US-GLAXOSMITHKLINE-A0396721A

PATIENT
  Age: 66 Year
  Sex: Female
  Weight: 65.5 kg

DRUGS (2)
  1. LAMICTAL [Suspect]
     Indication: MENINGIOMA
     Dosage: 50MG TWICE PER DAY
     Route: 048
     Dates: start: 20020426, end: 20030210
  2. ALLEGRA [Concomitant]

REACTIONS (4)
  - DRY MOUTH [None]
  - MOUTH ULCERATION [None]
  - SWELLING FACE [None]
  - SWOLLEN TONGUE [None]
